FAERS Safety Report 25479840 (Version 1)
Quarter: 2025Q2

REPORT INFORMATION
  Report Type: Spontaneous
  Country: IT (occurrence: IT)
  Receive Date: 20250625
  Receipt Date: 20250625
  Transmission Date: 20250716
  Serious: Yes (Other)
  Sender: AMGEN
  Company Number: IT-AMGEN-ITASP2025120870

PATIENT

DRUGS (1)
  1. BEVACIZUMAB [Suspect]
     Active Substance: BEVACIZUMAB
     Indication: Ovarian cancer
     Route: 065

REACTIONS (5)
  - Ovarian cancer recurrent [Unknown]
  - Metastatic neoplasm [Unknown]
  - Therapy partial responder [Unknown]
  - Peritoneal disorder [Unknown]
  - Gastrointestinal disorder [Unknown]
